FAERS Safety Report 6063931-5 (Version None)
Quarter: 2009Q1

REPORT INFORMATION
  Report Type: 
  Country: None (occurrence: None)
  Receive Date: 20090204
  Receipt Date: 20090123
  Transmission Date: 20090719
  Serious: Yes (Other)
  Sender: FDA-Public Use
  Company Number: PHHY2009BR02765

PATIENT
  Age: 31 Year
  Sex: Male

DRUGS (1)
  1. TEGRETOL [Suspect]
     Dosage: 400 MG, TID

REACTIONS (5)
  - DIARRHOEA [None]
  - ENTEROVIRUS INFECTION [None]
  - FLUID REPLACEMENT [None]
  - HYPONATRAEMIA [None]
  - VOMITING [None]
